FAERS Safety Report 24976556 (Version 1)
Quarter: 2025Q1

REPORT INFORMATION
  Report Type: Spontaneous
  Country: ES (occurrence: ES)
  Receive Date: 20250217
  Receipt Date: 20250217
  Transmission Date: 20250408
  Serious: Yes (Other)
  Sender: NOVARTIS
  Company Number: None

PATIENT
  Age: 20 Year
  Sex: Male

DRUGS (3)
  1. TERBINAFINE [Suspect]
     Active Substance: TERBINAFINE
     Indication: Tinea infection
     Dosage: 250 MG, QD (TERBINAFINA (7234A))
     Route: 048
     Dates: start: 20241117, end: 20241123
  2. CEFADROXIL [Suspect]
     Active Substance: CEFADROXIL
     Indication: Impetigo
     Dosage: 500 MG, Q8H (CEFADROXILO MONOHIDRATO (825MH) )
     Route: 048
     Dates: start: 20241119, end: 20241123
  3. CEFTRIAXONE [Suspect]
     Active Substance: CEFTRIAXONE
     Indication: Impetigo
     Route: 042
     Dates: start: 20241119, end: 20241119

REACTIONS (1)
  - Urticaria [Recovering/Resolving]

NARRATIVE: CASE EVENT DATE: 20241122
